FAERS Safety Report 9058789 (Version 1)
Quarter: 2013Q1

REPORT INFORMATION
  Report Type: Report from Study
  Country: LB (occurrence: LB)
  Receive Date: 20130204
  Receipt Date: 20130204
  Transmission Date: 20140127
  Serious: Yes (Hospitalization, Other)
  Sender: FDA-Public Use
  Company Number: PHHO2012LB007153

PATIENT
  Age: 48 None
  Sex: Female
  Weight: 62.5 kg

DRUGS (10)
  1. AFINITOR [Suspect]
     Indication: BREAST CANCER METASTATIC
     Dosage: UNK
     Route: 048
     Dates: start: 20111020, end: 20120615
  2. COMPARATOR PACLITAXEL [Suspect]
     Indication: BREAST CANCER METASTATIC
     Dosage: 140 MG, QD
     Route: 042
     Dates: start: 20111020, end: 20120608
  3. COMPARATOR TRASTUZUMAB [Suspect]
     Indication: BREAST CANCER METASTATIC
     Dosage: 140 MG, QW
     Route: 042
     Dates: start: 20111020, end: 20120621
  4. ZOMETA [Suspect]
     Indication: METASTASES TO BONE
     Dosage: 4 MG, QMO
     Dates: start: 20111201, end: 20120405
  5. SINLIP [Concomitant]
     Indication: HYPERCHOLESTEROLAEMIA
     Dosage: 10 MG, QD
     Dates: start: 20111215
  6. MST [Concomitant]
     Indication: MUSCULOSKELETAL CHEST PAIN
     Dosage: 10 MG, PRN
     Dates: start: 20120308, end: 20120410
  7. CONCOR [Concomitant]
     Indication: HYPERTENSION
     Dosage: 2.5 MG, QD
     Dates: start: 20120330
  8. PERIACTIN [Concomitant]
     Indication: WEIGHT DECREASED
     Dosage: 8 MG, TID
     Dates: start: 20120330
  9. CIPRALEX [Concomitant]
     Indication: DEPRESSION
     Dosage: 10 MG, QD
     Dates: start: 20120330
  10. EURO-D [Concomitant]
     Indication: VITAMIN SUPPLEMENTATION
     Dosage: UNK
     Dates: start: 20120624

REACTIONS (4)
  - Anaemia [Recovered/Resolved]
  - Granuloma [Unknown]
  - Lung infiltration [Recovering/Resolving]
  - Hypocalcaemia [Recovered/Resolved]
